FAERS Safety Report 5663476-8 (Version None)
Quarter: 2008Q1

REPORT INFORMATION
  Report Type: 
  Country: None (occurrence: None)
  Receive Date: 20080307
  Receipt Date: 20080226
  Transmission Date: 20080703
  Serious: No
  Sender: FDA-Public Use
  Company Number: TPA2007A02551

PATIENT
  Age: 69 Year
  Sex: Male
  Weight: 117.9352 kg

DRUGS (11)
  1. PIOGLITAZONE [Suspect]
     Indication: CARDIOVASCULAR EVENT PROPHYLAXIS
     Dosage: 1 IN 1 D, PER ORAL
     Route: 048
     Dates: start: 20070831, end: 20071217
  2. HYDROCHLOROTHIAZIDE [Concomitant]
  3. LISINOPRIL [Concomitant]
  4. ATORVASTATIN CALCIUM [Concomitant]
  5. METOPROLOL TARTRATE [Concomitant]
  6. ZOLPIDEM [Concomitant]
  7. CLOPIDOGREL [Concomitant]
  8. SERTRALINE [Concomitant]
  9. ENALAPRIL MALEATE [Concomitant]
  10. RANITIDINE [Concomitant]
  11. SL NTG (ALL OTHER THERAPEUTIC PRODUCTS) [Concomitant]

REACTIONS (3)
  - BLADDER DISORDER [None]
  - HAEMATURIA [None]
  - RENAL CYST [None]
